FAERS Safety Report 5619035-6 (Version None)
Quarter: 2008Q1

REPORT INFORMATION
  Report Type: 
  Country: None (occurrence: None)
  Receive Date: 20080207
  Receipt Date: 20080201
  Transmission Date: 20080703
  Serious: Yes (Hospitalization)
  Sender: FDA-Public Use
  Company Number: DE-BOEHRINGER INGELHEIM GMBH, GERMANY-2008-DE-00473DE

PATIENT
  Sex: Male
  Weight: 70 kg

DRUGS (2)
  1. VIRAMUNE [Suspect]
     Indication: HIV INFECTION
     Dates: start: 20070701
  2. TRUVADA [Concomitant]
     Indication: HIV INFECTION
     Dosage: EMTRICITABIN 200 MG/TENOFOVIRDISOPROXIL 245 MG
     Dates: start: 20060601

REACTIONS (4)
  - GENERALISED OEDEMA [None]
  - HYPERSENSITIVITY [None]
  - PULMONARY OEDEMA [None]
  - RASH GENERALISED [None]
